FAERS Safety Report 20902476 (Version 3)
Quarter: 2022Q3

REPORT INFORMATION
  Report Type: Spontaneous
  Country: GB (occurrence: GB)
  Receive Date: 20220601
  Receipt Date: 20220708
  Transmission Date: 20221027
  Serious: Yes (Hospitalization)
  Sender: FDA-Public Use
  Company Number: GB-MYLANLABS-2022M1041322

PATIENT
  Age: 74 Year
  Sex: Male

DRUGS (1)
  1. CLOZARIL [Suspect]
     Active Substance: CLOZAPINE
     Indication: Schizophrenia
     Dosage: UNK
     Route: 048
     Dates: start: 20010701, end: 20220624

REACTIONS (11)
  - Depressed level of consciousness [Unknown]
  - Fracture [Unknown]
  - Therapy interrupted [Unknown]
  - COVID-19 [Unknown]
  - Somnolence [Unknown]
  - Seizure [Unknown]
  - Urinary tract infection [Unknown]
  - Lower respiratory tract infection [Unknown]
  - Sepsis [Unknown]
  - White blood cell count decreased [Recovering/Resolving]
  - Neutrophil count decreased [Recovered/Resolved]

NARRATIVE: CASE EVENT DATE: 20220526
